FAERS Safety Report 6128266-0 (Version None)
Quarter: 2009Q1

REPORT INFORMATION
  Report Type: 
  Country: None (occurrence: None)
  Receive Date: 20090323
  Receipt Date: 20090318
  Transmission Date: 20090719
  Serious: Yes (Other)
  Sender: FDA-Public Use
  Company Number: US-ELI_LILLY_AND_COMPANY-US200903004927

PATIENT
  Age: 83 Year
  Sex: Male

DRUGS (3)
  1. XIGRIS [Suspect]
     Indication: SEPSIS
     Dates: start: 20090313, end: 20090317
  2. HEPARIN [Concomitant]
     Indication: THROMBOSIS PROPHYLAXIS
     Dates: end: 20090317
  3. NEXIUM [Concomitant]

REACTIONS (1)
  - PLATELET COUNT DECREASED [None]
